FAERS Safety Report 5792121-6 (Version None)
Quarter: 2008Q2

REPORT INFORMATION
  Report Type: 
  Country: None (occurrence: None)
  Receive Date: 20080623
  Receipt Date: 20080612
  Transmission Date: 20081010
  Serious: Yes (Other)
  Sender: FDA-Public Use
  Company Number: 2008AP001509

PATIENT
  Age: 74 Year
  Sex: Male

DRUGS (2)
  1. AMLODIPINE BESYLATE [Suspect]
     Indication: HYPERTENSION
     Dosage: 5 MG
  2. NAFTOPIDIL (NAFTOPIDIL ) [Concomitant]

REACTIONS (4)
  - DRUG ERUPTION [None]
  - LYMPHOMATOID PAPULOSIS [None]
  - MYCOSIS FUNGOIDES [None]
  - PSEUDOLYMPHOMA [None]
